FAERS Safety Report 23921734 (Version 1)
Quarter: 2024Q2

REPORT INFORMATION
  Report Type: Other
  Country: GB (occurrence: GB)
  Receive Date: 20240530
  Receipt Date: 20240530
  Transmission Date: 20240716
  Serious: Yes (Other)
  Sender: FDA-Public Use
  Company Number: None

PATIENT
  Age: 40 Year
  Sex: Male

DRUGS (3)
  1. IBUPROFEN [Suspect]
     Active Substance: IBUPROFEN
     Indication: Ill-defined disorder
     Dosage: UNK
     Route: 065
     Dates: start: 20240508
  2. DOXYCYCLINE [Concomitant]
     Active Substance: DOXYCYCLINE\DOXYCYCLINE HYCLATE
     Indication: Ill-defined disorder
     Dosage: UNK,  (TWO NOW THEN ONE DAILY)
     Route: 065
     Dates: start: 20240509, end: 20240516
  3. SERTRALINE [Concomitant]
     Active Substance: SERTRALINE HYDROCHLORIDE
     Indication: Ill-defined disorder
     Dosage: 1 (UNITS NOT SPECIFIED), QD (1 EVERY DAY)
     Route: 065
     Dates: start: 20230606

REACTIONS (1)
  - Wheezing [Unknown]

NARRATIVE: CASE EVENT DATE: 20240520
